FAERS Safety Report 10596977 (Version 2)
Quarter: 2014Q4

REPORT INFORMATION
  Report Type: Report from Study
  Country: GB (occurrence: GB)
  Receive Date: 20141120
  Receipt Date: 20141120
  Transmission Date: 20150529
  Serious: Yes (Hospitalization)
  Sender: FDA-Public Use
  Company Number: GB-ROCHE-1490383

PATIENT
  Age: 43 Year
  Sex: Female

DRUGS (1)
  1. CAPECITABINE. [Suspect]
     Active Substance: CAPECITABINE
     Indication: BREAST CANCER
     Dosage: THE PLANNED TREATMENT REGIMEN WAS EIGHT 3-WEEK CYCLES, WITH CAPECITABINE TAKEN TWICE DAILY FOR 2 WEE
     Route: 048

REACTIONS (5)
  - Nausea [Recovered/Resolved]
  - Vomiting [Recovered/Resolved]
  - Diarrhoea [Unknown]
  - Superior vena cava occlusion [Unknown]
  - Palmar-plantar erythrodysaesthesia syndrome [Unknown]
